FAERS Safety Report 18604004 (Version 1)
Quarter: 2020Q4

REPORT INFORMATION
  Report Type: Spontaneous
  Country: US (occurrence: US)
  Receive Date: 20201210
  Receipt Date: 20201210
  Transmission Date: 20210114
  Serious: No
  Sender: FDA-Public Use
  Company Number: None

PATIENT
  Age: 54 Year
  Sex: Male

DRUGS (4)
  1. LISINOPRIL/HYDROCHLOROTHI [Concomitant]
  2. DESCOVY [Suspect]
     Active Substance: EMTRICITABINE\TENOFOVIR ALAFENAMIDE FUMARATE
     Indication: PROPHYLAXIS AGAINST HIV INFECTION
     Dosage: ?          OTHER DOSE:200-25 MG TAB;?
     Route: 048
  3. PREDISONE [Concomitant]
     Active Substance: PREDNISONE
  4. BRILINTA [Concomitant]
     Active Substance: TICAGRELOR

REACTIONS (1)
  - Myocardial infarction [None]
